FAERS Safety Report 6903054-3 (Version None)
Quarter: 2010Q3

REPORT INFORMATION
  Report Type: 
  Country: None (occurrence: None)
  Receive Date: 20100803
  Receipt Date: 20080822
  Transmission Date: 20110219
  Serious: No
  Sender: FDA-Public Use
  Company Number: US-PFIZER INC-2008070140

PATIENT
  Sex: Male

DRUGS (4)
  1. LYRICA [Suspect]
     Dates: start: 20080801
  2. PERCOCET [Concomitant]
  3. ANTIHYPERTENSIVES [Concomitant]
  4. PLAVIX [Concomitant]

REACTIONS (1)
  - DEPRESSION [None]
